FAERS Safety Report 4872247-1 (Version None)
Quarter: 2005Q4

REPORT INFORMATION
  Report Type: 
  Country: None (occurrence: None)
  Receive Date: 20051201
  Receipt Date: 20050728
  Transmission Date: 20060501
  Serious: No
  Sender: FDA-Public Use
  Company Number: 2005PV000772

PATIENT
  Age: 50 Year
  Sex: Male

DRUGS (2)
  1. BYETTA [Suspect]
     Dosage: 5 MCG;BID;SC; 5 MCG;QD; SC
     Route: 058
     Dates: start: 20050604, end: 20050618
  2. BYETTA [Suspect]
     Dosage: 5 MCG;BID;SC; 5 MCG;QD; SC
     Route: 058
     Dates: start: 20050618

REACTIONS (4)
  - CHANGE OF BOWEL HABIT [None]
  - DISORIENTATION [None]
  - GASTROOESOPHAGEAL REFLUX DISEASE [None]
  - NAUSEA [None]
